FAERS Safety Report 5413164-8 (Version None)
Quarter: 2007Q3

REPORT INFORMATION
  Report Type: 
  Country: None (occurrence: None)
  Receive Date: 20070810
  Receipt Date: 20070713
  Transmission Date: 20080115
  Serious: Yes (Other)
  Sender: FDA-Public Use
  Company Number: 2007RR-08719

PATIENT
  Age: 20 Year
  Sex: Female

DRUGS (8)
  1. MINOCYCLINE (MINOCYCLINE) UNKNOWN [Suspect]
     Indication: ACNE
     Dosage: 100 MG, BID
  2. TRETINOIN (TRETINOIN) CREAM, 0.05% [Concomitant]
  3. BENZAMYCIN (BENZOYL PEROXIDE/ERYTHROMYCIN) GEL [Concomitant]
  4. BENZOYL PEROXIDE (BENZOYL PEROXIDE) GEL, 6% [Concomitant]
  5. TRIPHASIC ETHINYL ESTRADIOL/NORGESTIMATE (TRIPHASIC ETHINYL ESTRADIOL/ [Concomitant]
  6. ALBUTEROL [Concomitant]
  7. PREDNISOLONE [Concomitant]
  8. DOXYCYCLINE [Concomitant]

REACTIONS (5)
  - ARTERIAL THROMBOSIS [None]
  - LEUKOCYTOCLASTIC VASCULITIS [None]
  - NECROSIS OF ARTERY [None]
  - NODULE [None]
  - POLYARTERITIS NODOSA [None]
